FAERS Safety Report 7435527-1 (Version None)
Quarter: 2011Q2

REPORT INFORMATION
  Report Type: 
  Country: None (occurrence: None)
  Receive Date: 20110425
  Receipt Date: 20110418
  Transmission Date: 20111010
  Serious: Yes (Death, Life-Threatening, Hospitalization, Other)
  Sender: FDA-Public Use
  Company Number: JP-BRISTOL-MYERS SQUIBB COMPANY-15013212

PATIENT
  Age: 59 Year
  Sex: Male

DRUGS (5)
  1. CYLOCIDE [Suspect]
     Indication: CHRONIC MYELOID LEUKAEMIA
     Dosage: 01APR-02APR10,60MG 03APR-06APR10,40MG 07APR-04MAY10,40-60MG 10MAY-11MAY10,100MG 17MAY-18MAY10
     Route: 042
     Dates: start: 20100401, end: 20100518
  2. SPRYCEL [Suspect]
     Indication: CHRONIC MYELOID LEUKAEMIA
     Dosage: DOSE INC TO 100 MG(15JAN10-25MAY10) 15JAN-03MAR10,100MG 07MAR-22MAR10,50MG 28MAR-22MAY10,50MG
     Route: 048
     Dates: start: 20100115, end: 20100522
  3. MAXIPIME [Concomitant]
     Route: 042
     Dates: start: 20100517, end: 20100524
  4. HYDREA [Suspect]
     Indication: CHRONIC MYELOID LEUKAEMIA
     Route: 048
     Dates: start: 20100121, end: 20100203
  5. FINIBAX [Concomitant]
     Dosage: INJ
     Route: 042
     Dates: start: 20100524, end: 20100525

REACTIONS (9)
  - PNEUMONIA [None]
  - HYPOCALCAEMIA [None]
  - TUMOUR LYSIS SYNDROME [None]
  - RENAL FAILURE ACUTE [None]
  - SEPSIS [None]
  - PLATELET COUNT DECREASED [None]
  - PLEURAL EFFUSION [None]
  - WHITE BLOOD CELL COUNT DECREASED [None]
  - ANAEMIA [None]
